FAERS Safety Report 17705706 (Version 2)
Quarter: 2020Q2

REPORT INFORMATION
  Report Type: Spontaneous
  Country: JP (occurrence: JP)
  Receive Date: 20200424
  Receipt Date: 20200512
  Transmission Date: 20200714
  Serious: Yes (Other)
  Sender: FDA-Public Use
  Company Number: JP-ABBVIE-20K-087-3377742-00

PATIENT
  Age: 68 Year
  Sex: Male

DRUGS (2)
  1. ANAGLIPTIN [Concomitant]
     Active Substance: ANAGLIPTIN
     Indication: DIABETES MELLITUS
     Dosage: STRENGTH 100
  2. KALETRA [Suspect]
     Active Substance: LOPINAVIR\RITONAVIR
     Indication: CORONAVIRUS INFECTION
     Route: 048

REACTIONS (5)
  - Mechanical ventilation [Unknown]
  - White blood cell count increased [Unknown]
  - Off label use [Unknown]
  - Neutrophil count increased [Unknown]
  - Lung infiltration [Unknown]
